FAERS Safety Report 21140089 (Version 7)
Quarter: 2022Q3

REPORT INFORMATION
  Report Type: Report from Study
  Country: FR (occurrence: FR)
  Receive Date: 20220728
  Receipt Date: 20220930
  Transmission Date: 20221026
  Serious: Yes (Life-Threatening, Hospitalization, Other)
  Sender: FDA-Public Use
  Company Number: FR-NOVARTISPH-NVSC2022FR169280

PATIENT
  Sex: Male
  Weight: 73 kg

DRUGS (7)
  1. TRAMETINIB [Suspect]
     Active Substance: TRAMETINIB
     Indication: Metastatic malignant melanoma
     Dosage: 2 MG
     Route: 048
     Dates: start: 20220505, end: 20220706
  2. TRAMETINIB [Suspect]
     Active Substance: TRAMETINIB
     Dosage: 1.5 MG
     Route: 048
     Dates: start: 20220710, end: 20220715
  3. TRAMETINIB [Suspect]
     Active Substance: TRAMETINIB
     Dosage: 0.5 MG
     Route: 048
     Dates: start: 20220810
  4. DABRAFENIB [Suspect]
     Active Substance: DABRAFENIB
     Indication: Metastatic malignant melanoma
     Dosage: 300 MG
     Route: 048
     Dates: start: 20220505, end: 20220706
  5. DABRAFENIB [Suspect]
     Active Substance: DABRAFENIB
     Dosage: 100 MG
     Route: 048
     Dates: start: 20220710, end: 20220715
  6. DABRAFENIB [Suspect]
     Active Substance: DABRAFENIB
     Dosage: 50 MG
     Route: 048
     Dates: start: 20220810, end: 20220819
  7. DABRAFENIB [Suspect]
     Active Substance: DABRAFENIB
     Dosage: 75 MG
     Route: 065
     Dates: start: 20220819

REACTIONS (12)
  - Blood creatine phosphokinase increased [Recovered/Resolved]
  - Hypoglycaemia [Recovered/Resolved]
  - General physical health deterioration [Recovering/Resolving]
  - Decreased appetite [Recovered/Resolved]
  - Lymphadenopathy [Unknown]
  - Malignant neoplasm progression [Unknown]
  - Metastatic malignant melanoma [Unknown]
  - Paraparesis [Not Recovered/Not Resolved]
  - Hepatic cytolysis [Recovering/Resolving]
  - Aspartate aminotransferase increased [Recovering/Resolving]
  - Hypothyroidism [Not Recovered/Not Resolved]
  - Nausea [Recovered/Resolved]

NARRATIVE: CASE EVENT DATE: 20220604
